FAERS Safety Report 9109899 (Version 1)
Quarter: 2013Q1

REPORT INFORMATION
  Report Type: Spontaneous
  Country: AU (occurrence: AU)
  Receive Date: 20130222
  Receipt Date: 20130222
  Transmission Date: 20140127
  Serious: Yes (Hospitalization)
  Sender: FDA-Public Use
  Company Number: AU-009507513-1302AUS008930

PATIENT
  Sex: Male

DRUGS (3)
  1. RIBAVIRIN [Suspect]
     Dosage: UNK
     Dates: start: 20121115
  2. PEGINTERFERON ALFA-2B [Suspect]
     Dosage: UNK
     Dates: start: 20121115
  3. TELAPREVIR [Suspect]
     Dosage: UNK
     Route: 048
     Dates: start: 20121115

REACTIONS (4)
  - Cardiac murmur [Unknown]
  - Pyrexia [Unknown]
  - Diarrhoea [Unknown]
  - Gastrointestinal viral infection [Unknown]
